FAERS Safety Report 14426143 (Version 2)
Quarter: 2018Q1

REPORT INFORMATION
  Report Type: Spontaneous
  Country: US (occurrence: US)
  Receive Date: 20180123
  Receipt Date: 20180202
  Transmission Date: 20180509
  Serious: Yes (Hospitalization, Other)
  Sender: FDA-Public Use
  Company Number: US-CORCEPT THERAPEUTICS INC.-US-2018CRT000053

PATIENT

DRUGS (1)
  1. KORLYM [Suspect]
     Active Substance: MIFEPRISTONE
     Indication: CUSHING^S SYNDROME
     Dosage: 1200 MG, QD
     Route: 048
     Dates: start: 20170413, end: 20180118

REACTIONS (4)
  - Adrenal haemorrhage [Not Recovered/Not Resolved]
  - Blood corticotrophin decreased [Unknown]
  - Carcinoid tumour [Unknown]
  - Pain [Unknown]

NARRATIVE: CASE EVENT DATE: 201801
